FAERS Safety Report 7017660-1 (Version None)
Quarter: 2010Q3

REPORT INFORMATION
  Report Type: 
  Country: None (occurrence: None)
  Receive Date: 20100928
  Receipt Date: 20100916
  Transmission Date: 20110219
  Serious: Yes (Other)
  Sender: FDA-Public Use
  Company Number: US-PFIZER INC-2010118241

PATIENT
  Sex: Female
  Weight: 60.77 kg

DRUGS (3)
  1. NEURONTIN [Suspect]
     Dosage: UNK
  2. LYRICA [Suspect]
     Indication: DIABETIC NEUROPATHY
     Dosage: 50 MG, 1X/DAY
     Route: 048
  3. LYRICA [Suspect]
     Indication: FIBROMYALGIA

REACTIONS (4)
  - BONE PAIN [None]
  - CATARACT [None]
  - NECK PAIN [None]
  - PAIN [None]
